FAERS Safety Report 9558918 (Version 4)
Quarter: 2014Q2

REPORT INFORMATION
  Report Type: Report from Study
  Country: GB (occurrence: GB)
  Receive Date: 20130927
  Receipt Date: 20140507
  Transmission Date: 20141212
  Serious: Yes (Hospitalization)
  Sender: FDA-Public Use
  Company Number: GB-MERCK-1309GBR010804

PATIENT
  Age: 68 Year
  Sex: Female

DRUGS (4)
  1. VORINOSTAT [Suspect]
     Indication: PLASMA CELL MYELOMA
     Dosage: 200 MG, ON DAY 1-7, 15-21 OF 28 DAYS
     Route: 048
     Dates: start: 20121102, end: 20140130
  2. VORINOSTAT [Suspect]
     Dosage: DOSE REDUCTION 35%
     Route: 048
  3. LENALIDOMIDE [Suspect]
     Indication: PLASMA CELL MYELOMA
     Dosage: 5 MG,QOD FOR 21 DAYS OF A 28 DAY CYCLE
     Route: 048
     Dates: start: 20120113, end: 20140130
  4. LENALIDOMIDE [Suspect]
     Dosage: 2.5 MG, QOD, DOSE REDUCTION 50%
     Route: 048

REACTIONS (2)
  - Herpes zoster [Recovered/Resolved with Sequelae]
  - Neutropenic sepsis [Recovered/Resolved with Sequelae]
